FAERS Safety Report 6174818-1 (Version None)
Quarter: 2009Q2

REPORT INFORMATION
  Report Type: 
  Country: None (occurrence: None)
  Receive Date: 20090430
  Receipt Date: 20081119
  Transmission Date: 20091009
  Serious: No
  Sender: FDA-Public Use
  Company Number: US-ASTRAZENECA-2008UW25912

PATIENT
  Age: 53 Year
  Sex: Female
  Weight: 62.6 kg

DRUGS (2)
  1. NEXIUM [Suspect]
     Indication: GASTROOESOPHAGEAL REFLUX DISEASE
     Route: 048
  2. VITAMIN D [Concomitant]

REACTIONS (2)
  - MICTURITION DISORDER [None]
  - VULVOVAGINAL DISCOMFORT [None]
